FAERS Safety Report 8487127-2 (Version None)
Quarter: 2012Q3

REPORT INFORMATION
  Report Type: 
  Country: None (occurrence: None)
  Receive Date: 20120704
  Receipt Date: 20120629
  Transmission Date: 20120928
  Serious: Yes (Hospitalization)
  Sender: FDA-Public Use
  Company Number: PHHY2012NL055883

PATIENT
  Age: 62 Year
  Sex: Female

DRUGS (7)
  1. CARBAMAZEPINE [Suspect]
     Indication: BIPOLAR DISORDER
     Dosage: 200 MG, BID
     Route: 048
     Dates: start: 20050101
  2. VORICONAZOLE [Interacting]
     Dosage: 510 MG, BID
     Route: 042
  3. VORICONAZOLE [Interacting]
     Dosage: 425 MG, BID
     Route: 042
  4. CASPOFUNGIN ACETATE [Concomitant]
  5. VORICONAZOLE [Interacting]
     Dosage: 200 MG, BID
     Route: 048
  6. AMPHOTERICIN B [Concomitant]
  7. VORICONAZOLE [Interacting]
     Dosage: 400 MG, BID
     Route: 048

REACTIONS (2)
  - DRUG LEVEL DECREASED [None]
  - DRUG INTERACTION [None]
